FAERS Safety Report 9111836 (Version 1)
Quarter: 2013Q1

REPORT INFORMATION
  Report Type: Spontaneous
  Country: US (occurrence: US)
  Receive Date: 20130219
  Receipt Date: 20130219
  Transmission Date: 20140127
  Serious: No
  Sender: FDA-Public Use
  Company Number: US-BRISTOL-MYERS SQUIBB COMPANY-16666539

PATIENT
  Age: 48 Year
  Sex: Female
  Weight: 47.62 kg

DRUGS (4)
  1. ORENCIA [Suspect]
     Indication: RHEUMATOID ARTHRITIS
     Dosage: 4THH IV, LAST INF ON 28JUL2012, OCT2012
     Route: 042
     Dates: start: 20120601
  2. VOLTAREN [Concomitant]
  3. PLAQUENIL [Concomitant]
  4. NEURONTIN [Concomitant]

REACTIONS (4)
  - Altered state of consciousness [Unknown]
  - Burning sensation [Not Recovered/Not Resolved]
  - Insomnia [Not Recovered/Not Resolved]
  - Drug ineffective [Unknown]
